FAERS Safety Report 25778632 (Version 3)
Quarter: 2025Q4

REPORT INFORMATION
  Report Type: Spontaneous
  Country: EU (occurrence: EU)
  Receive Date: 20250909
  Receipt Date: 20251205
  Transmission Date: 20260117
  Serious: Yes (Other)
  Sender: AUROBINDO
  Company Number: EU-AEMPS-1745010

PATIENT
  Age: 69 Year
  Sex: Male

DRUGS (7)
  1. METFORMIN [Suspect]
     Active Substance: METFORMIN HYDROCHLORIDE
     Indication: Type 2 diabetes mellitus
     Dosage: 850 MILLIGRAM, ONCE A DAY
     Dates: start: 20160229, end: 20200127
  2. XIGDUO XR [Suspect]
     Active Substance: DAPAGLIFLOZIN PROPANEDIOL\METFORMIN HYDROCHLORIDE
     Indication: Type 2 diabetes mellitus
     Dosage: 1 DOSAGE FORM, TWO TIMES A DAY
     Dates: start: 20230421, end: 20241204
  3. LINAGLIPTIN\METFORMIN HYDROCHLORIDE [Suspect]
     Active Substance: LINAGLIPTIN\METFORMIN HYDROCHLORIDE
     Indication: Type 2 diabetes mellitus
     Dosage: 1 DOSAGE FORM, TWO TIMES A DAY
     Dates: start: 20210415, end: 20230421
  4. DAPAGLIFLOZIN PROPANEDIOL\METFORMIN HYDROCHLORIDE [Suspect]
     Active Substance: DAPAGLIFLOZIN PROPANEDIOL\METFORMIN HYDROCHLORIDE
     Indication: Type 2 diabetes mellitus
     Dosage: 1 DOSAGE FORM, TWO TIMES A DAY
     Dates: start: 20200127, end: 20210415
  5. Pirfenidone Kern Pharma 801 mg film-coated tablets, 84 tablets (PVC/Al [Concomitant]
     Indication: Idiopathic pulmonary fibrosis
     Dosage: UNK UNK, 3 TIMES A DAY (84 TABLETS)
     Dates: start: 20240314
  6. PANTOPRAZOLE ARISTO 40 MG GASTRORE-RESISTANT TABLETS EFG, 14 tablets ( [Concomitant]
     Indication: Gastrooesophageal reflux disease
     Dosage: UNK
  7. Carvedilol Kern Pharma 25 mg Film-Coated Tablets, 28 tablets [Concomitant]
     Indication: Product used for unknown indication
     Dosage: 12.5 MILLIGRAM, TWO TIMES A DAY
     Dates: start: 20120323

REACTIONS (2)
  - Diarrhoea [Recovered/Resolved]
  - Eosinophilia [Recovered/Resolved]

NARRATIVE: CASE EVENT DATE: 20200101
